FAERS Safety Report 16968734 (Version 1)
Quarter: 2019Q4

REPORT INFORMATION
  Report Type: Spontaneous
  Country: SE (occurrence: SE)
  Receive Date: 20191029
  Receipt Date: 20191029
  Transmission Date: 20200122
  Serious: Yes (Other)
  Sender: FDA-Public Use
  Company Number: SE-ROCHE-2452543

PATIENT
  Age: 47 Year
  Sex: Female

DRUGS (6)
  1. MABTHERA [Suspect]
     Active Substance: RITUXIMAB
     Dosage: ^1000 MG 2019-03-05, 500MG 2019-09-12.^
     Route: 042
     Dates: start: 20190912
  2. MABTHERA [Suspect]
     Active Substance: RITUXIMAB
     Indication: MULTIPLE SCLEROSIS
     Dosage: ^1000 MG 2019-03-05, 500MG 2019-09-12.^
     Route: 042
     Dates: start: 20190305, end: 20190305
  3. CITALOPRAM [Concomitant]
     Active Substance: CITALOPRAM HYDROBROMIDE
     Route: 065
     Dates: start: 200503
  4. MODIODAL [Concomitant]
     Active Substance: MODAFINIL
     Route: 065
     Dates: start: 200403
  5. DIMETIKON [Concomitant]
     Route: 065
     Dates: start: 200102
  6. LAMOTRIGIN [Concomitant]
     Active Substance: LAMOTRIGINE
     Route: 065
     Dates: start: 20161130

REACTIONS (3)
  - Pruritus [Not Recovered/Not Resolved]
  - Alopecia [Not Recovered/Not Resolved]
  - Skin burning sensation [Not Recovered/Not Resolved]

NARRATIVE: CASE EVENT DATE: 20190515
